FAERS Safety Report 11095659 (Version 26)
Quarter: 2017Q1

REPORT INFORMATION
  Report Type: Report from Study
  Country: CA (occurrence: CA)
  Receive Date: 20150506
  Receipt Date: 20170221
  Transmission Date: 20170428
  Serious: Yes (Hospitalization, Other)
  Sender: FDA-Public Use
  Company Number: CA-ROCHE-1232408

PATIENT
  Age: 68 Year
  Sex: Female
  Weight: 85 kg

DRUGS (10)
  1. ACTEMRA [Suspect]
     Active Substance: TOCILIZUMAB
     Indication: RHEUMATOID ARTHRITIS
     Route: 042
     Dates: start: 20130501
  2. AMLODIPINE [Concomitant]
     Active Substance: AMLODIPINE BESYLATE
  3. VITAMIN B12 [Concomitant]
     Active Substance: CYANOCOBALAMIN
  4. NAPROXEN. [Suspect]
     Active Substance: NAPROXEN
     Indication: PRODUCT USED FOR UNKNOWN INDICATION
     Route: 065
  5. METHOTREXATE. [Concomitant]
     Active Substance: METHOTREXATE
  6. COZAAR [Concomitant]
     Active Substance: LOSARTAN POTASSIUM
  7. FOLIC ACID. [Concomitant]
     Active Substance: FOLIC ACID
  8. LUMIGAN [Suspect]
     Active Substance: BIMATOPROST
     Indication: PRODUCT USED FOR UNKNOWN INDICATION
     Route: 065
     Dates: start: 2013
  9. VITAMIN B6 [Concomitant]
     Active Substance: PYRIDOXINE HYDROCHLORIDE
  10. COLACE [Concomitant]
     Active Substance: DOCUSATE SODIUM

REACTIONS (36)
  - Rash [Recovered/Resolved]
  - Infusion site bruising [Unknown]
  - Arthritis [Not Recovered/Not Resolved]
  - Localised infection [Recovered/Resolved]
  - Asthenia [Unknown]
  - Fall [Unknown]
  - Blood pressure increased [Unknown]
  - Drug hypersensitivity [Unknown]
  - Scoliosis [Not Recovered/Not Resolved]
  - Cardiovascular disorder [Recovering/Resolving]
  - Musculoskeletal stiffness [Recovering/Resolving]
  - Blood pressure increased [Unknown]
  - Wound infection [Not Recovered/Not Resolved]
  - Thrombosis [Recovering/Resolving]
  - Drug effect decreased [Unknown]
  - Thyroid function test abnormal [Unknown]
  - Weight increased [Unknown]
  - Oxygen saturation decreased [Unknown]
  - Arthralgia [Recovering/Resolving]
  - Impaired healing [Recovering/Resolving]
  - Heart rate decreased [Unknown]
  - Myalgia [Recovering/Resolving]
  - Granuloma [Not Recovered/Not Resolved]
  - Intervertebral disc degeneration [Not Recovered/Not Resolved]
  - Eye pruritus [Recovered/Resolved]
  - Weight decreased [Not Recovered/Not Resolved]
  - Hypotension [Unknown]
  - Urinary tract infection [Unknown]
  - Scratch [Recovered/Resolved]
  - Contusion [Recovering/Resolving]
  - Blood cholesterol increased [Not Recovered/Not Resolved]
  - Pain [Recovering/Resolving]
  - Fatigue [Unknown]
  - Infusion related reaction [Unknown]
  - Laceration [Unknown]
  - Blood pressure systolic increased [Unknown]

NARRATIVE: CASE EVENT DATE: 20130527
